FAERS Safety Report 25792441 (Version 1)
Quarter: 2025Q3

REPORT INFORMATION
  Report Type: Spontaneous
  Country: US (occurrence: US)
  Receive Date: 20250911
  Receipt Date: 20250911
  Transmission Date: 20251021
  Serious: Yes (Life-Threatening, Hospitalization, Other)
  Sender: SANDOZ
  Company Number: US-SANDOZ-SDZ2025US066126

PATIENT
  Age: 41 Year
  Sex: Female

DRUGS (1)
  1. SUCCINYLCHOLINE CHLORIDE [Suspect]
     Active Substance: SUCCINYLCHOLINE CHLORIDE
     Indication: Anaesthesia
     Route: 065

REACTIONS (3)
  - Respiratory distress [Unknown]
  - Paralysis [Unknown]
  - Myasthenia gravis crisis [Unknown]
